FAERS Safety Report 7204814-4 (Version None)
Quarter: 2010Q4

REPORT INFORMATION
  Report Type: 
  Country: None (occurrence: None)
  Receive Date: 20101230
  Receipt Date: 20101222
  Transmission Date: 20110411
  Serious: No
  Sender: FDA-Public Use
  Company Number: US-PFIZER INC-2010178309

PATIENT
  Sex: Female
  Weight: 77.11 kg

DRUGS (5)
  1. LYBREL [Suspect]
     Indication: CONTRACEPTION
     Dosage: 1 DF, 1X/DAY
     Route: 048
     Dates: start: 20071101
  2. CETIRIZINE HCL AND PSEUDOEPHEDRINE [Concomitant]
     Indication: CHRONIC SINUSITIS
  3. VIRAMYST [Concomitant]
     Indication: CHRONIC SINUSITIS
  4. PROZAC [Concomitant]
     Indication: SUICIDAL IDEATION
  5. LAMICTAL [Concomitant]

REACTIONS (6)
  - CIRCUMSTANCE OR INFORMATION CAPABLE OF LEADING TO MEDICATION ERROR [None]
  - FATIGUE [None]
  - MALAISE [None]
  - MUSCLE SPASMS [None]
  - NASAL POLYPS [None]
  - SINUSITIS [None]
